FAERS Safety Report 15632666 (Version 4)
Quarter: 2019Q3

REPORT INFORMATION
  Report Type: Spontaneous
  Country: US (occurrence: US)
  Receive Date: 20181119
  Receipt Date: 20190930
  Transmission Date: 20191004
  Serious: No
  Sender: FDA-Public Use
  Company Number: US-PFIZER INC-2018475994

PATIENT
  Age: 64 Year
  Sex: Female

DRUGS (8)
  1. GLUCOSE OXIDASE [Suspect]
     Active Substance: GLUCOSE OXIDASE
     Dosage: UNK
  2. SILICONE PRODUCTS [Suspect]
     Active Substance: UNSPECIFIED INGREDIENT
  3. LACTOPEROXIDASE [Suspect]
     Active Substance: MYELOPEROXIDASE
     Dosage: UNK
  4. BIOTENE DRY MOUTH [GLUCOSE OXIDASE;LACTOFERRIN;LACTOPEROXIDASE;LYSOZYM [Suspect]
     Active Substance: DEVICE\GLUCOSE OXIDASE\LACTOFERRIN\LACTOPEROXIDASE BOVINE\LYSOZYME HYDROCHLORIDE
     Dosage: UNK
  5. BIOTENE MOISTURIZING MOUTH (GLUCOSE OXIDASE\LACTOFERRIN\LACTOPEROXIDASE\LYSOZYME) [Suspect]
     Active Substance: DEVICE\GLUCOSE OXIDASE\LACTOFERRIN\LACTOPEROXIDASE BOVINE\LYSOZYME HYDROCHLORIDE
     Dosage: UNK
  6. NITROGLYCERIN. [Suspect]
     Active Substance: NITROGLYCERIN
     Dosage: UNK
  7. POTASSIUM THIOCYANATE [Suspect]
     Active Substance: POTASSIUM THIOCYANATE
     Dosage: UNK
  8. LACTOFERRIN [Suspect]
     Active Substance: LACTOFERRIN

REACTIONS (1)
  - Drug hypersensitivity [Unknown]
